FAERS Safety Report 8122232-1 (Version None)
Quarter: 2012Q1

REPORT INFORMATION
  Report Type: 
  Country: None (occurrence: None)
  Receive Date: 20120208
  Receipt Date: 20120130
  Transmission Date: 20120608
  Serious: Yes (Hospitalization)
  Sender: FDA-Public Use
  Company Number: FR-MILLENNIUM PHARMACEUTICALS, INC.-2011-04881

PATIENT

DRUGS (6)
  1. REVLIMID [Suspect]
     Indication: MULTIPLE MYELOMA
     Dosage: 25 MG, UNK
     Route: 065
     Dates: start: 20110906, end: 20111009
  2. LEDERFOLIN                         /00566702/ [Concomitant]
     Dosage: 25 MG, UNK
     Route: 048
     Dates: start: 20110906
  3. INNOHEP [Concomitant]
     Dosage: UNK
     Dates: start: 20110906
  4. VELCADE [Suspect]
     Indication: MULTIPLE MYELOMA
     Dosage: 1.3 MG, UNK
     Route: 065
     Dates: start: 20110906, end: 20111007
  5. DEXAMETHASONE [Suspect]
     Indication: MULTIPLE MYELOMA
     Dosage: 20 MG, UNK
     Route: 065
     Dates: start: 20110906, end: 20111008
  6. ZELITREX                           /01269701/ [Concomitant]
     Dosage: 500 MG, UNK
     Route: 048
     Dates: start: 20110906

REACTIONS (5)
  - VOMITING [None]
  - CHILLS [None]
  - DYSPNOEA [None]
  - ORTHOSTATIC HYPOTENSION [None]
  - GENERAL PHYSICAL HEALTH DETERIORATION [None]
